FAERS Safety Report 12191656 (Version 1)
Quarter: 2016Q1

REPORT INFORMATION
  Report Type: Spontaneous
  Country: US (occurrence: US)
  Receive Date: 20160318
  Receipt Date: 20160318
  Transmission Date: 20160526
  Serious: No
  Sender: FDA-Public Use
  Company Number: US-IMPAX LABORATORIES, INC-2015-IPXL-00879

PATIENT
  Age: 56 Year
  Sex: Male

DRUGS (6)
  1. MEKINIST [Suspect]
     Active Substance: TRAMETINIB DIMETHYL SULFOXIDE
     Indication: METASTASES TO LIVER
  2. RILUZOLE. [Suspect]
     Active Substance: RILUZOLE
     Indication: INTRAOCULAR MELANOMA
     Dosage: UNK
     Route: 065
     Dates: start: 20150318, end: 20150727
  3. RILUZOLE. [Suspect]
     Active Substance: RILUZOLE
     Indication: METASTASES TO LIVER
  4. MEKINIST [Suspect]
     Active Substance: TRAMETINIB DIMETHYL SULFOXIDE
     Indication: INTRAOCULAR MELANOMA
     Dosage: UNK
     Route: 065
     Dates: start: 20150318, end: 20150727
  5. IBRANCE [Suspect]
     Active Substance: PALBOCICLIB
     Indication: INTRAOCULAR MELANOMA
     Dosage: 125 MG, 1D-21D, Q28 DAY.
     Route: 048
     Dates: start: 20150318, end: 20150727
  6. IBRANCE [Suspect]
     Active Substance: PALBOCICLIB
     Indication: INTRAOCULAR MELANOMA

REACTIONS (2)
  - Infection [Unknown]
  - Rash generalised [Unknown]

NARRATIVE: CASE EVENT DATE: 20150514
